FAERS Safety Report 5465667-8 (Version None)
Quarter: 2007Q3

REPORT INFORMATION
  Report Type: 
  Country: None (occurrence: None)
  Receive Date: 20070924
  Receipt Date: 20070911
  Transmission Date: 20080115
  Serious: Yes (Hospitalization)
  Sender: FDA-Public Use
  Company Number: FR-ROCHE-517367

PATIENT
  Age: 43 Year
  Sex: Male

DRUGS (12)
  1. ROCEPHIN [Suspect]
     Indication: DRUG USE FOR UNKNOWN INDICATION
     Dosage: FORM: INJECTABLE SOLUTION.
     Route: 042
     Dates: start: 20070718, end: 20070721
  2. CORTANCYL [Concomitant]
     Indication: IMMUNOSUPPRESSION
  3. PROGRAF [Concomitant]
     Indication: IMMUNOSUPPRESSION
  4. PROGRAF [Concomitant]
  5. CELLCEPT [Concomitant]
     Indication: IMMUNOSUPPRESSION
  6. BACTRIM [Concomitant]
  7. ROVALCYTE [Concomitant]
  8. INIPOMP [Concomitant]
  9. TRIFLUCAN [Concomitant]
  10. LASIX [Concomitant]
  11. VITAMINE K1 [Concomitant]
  12. FOLINIC ACID [Concomitant]
     Dosage: TRADE NAME REPORTED AS FOLINATE.

REACTIONS (4)
  - HYPERSENSITIVITY [None]
  - PYREXIA [None]
  - RENAL FAILURE [None]
  - THROMBOCYTOPENIA [None]
